FAERS Safety Report 14610004 (Version 1)
Quarter: 2018Q1

REPORT INFORMATION
  Report Type: Spontaneous
  Country: US (occurrence: US)
  Receive Date: 20180307
  Receipt Date: 20180307
  Transmission Date: 20180509
  Serious: No
  Sender: FDA-Public Use
  Company Number: None

PATIENT
  Age: 54 Year
  Sex: Male
  Weight: 108.94 kg

DRUGS (2)
  1. LEDIPASVIR AND SOFOSBUVIR [Suspect]
     Active Substance: LEDIPASVIR\SOFOSBUVIR
     Indication: CHRONIC HEPATITIS C
     Dosage: DOSE - 1 TOT - TOTAL
     Route: 048
     Dates: start: 20171213, end: 20180306
  2. CHOLECALCIFEROL 50,000 IU [Concomitant]
     Dates: start: 20171215

REACTIONS (3)
  - Oedema peripheral [None]
  - Arthralgia [None]
  - Arthropathy [None]

NARRATIVE: CASE EVENT DATE: 20180201
